FAERS Safety Report 6830295-6 (Version None)
Quarter: 2010Q3

REPORT INFORMATION
  Report Type: 
  Country: None (occurrence: None)
  Receive Date: 20100712
  Receipt Date: 20100630
  Transmission Date: 20110219
  Serious: Yes (Hospitalization)
  Sender: FDA-Public Use
  Company Number: US-BIOGENIDEC-2010BI015274

PATIENT
  Age: 69 Year
  Sex: Female

DRUGS (3)
  1. AVONEX [Suspect]
     Indication: MULTIPLE SCLEROSIS
     Route: 030
     Dates: start: 20080601
  2. AVONEX [Suspect]
     Route: 030
     Dates: start: 20030806, end: 20030901
  3. AVONEX [Suspect]
     Route: 030
     Dates: start: 20030901

REACTIONS (2)
  - FALL [None]
  - ROTATOR CUFF SYNDROME [None]
